FAERS Safety Report 5671897-2 (Version None)
Quarter: 2008Q2

REPORT INFORMATION
  Report Type: 
  Country: None (occurrence: None)
  Receive Date: 20080219
  Receipt Date: 20071022
  Transmission Date: 20081010
  Serious: No
  Sender: FDA-Public Use
  Company Number: TPA2007A01934

PATIENT
  Age: 33 Year
  Sex: Female
  Weight: 56.6996 kg

DRUGS (9)
  1. ROZEREM [Suspect]
     Indication: INSOMNIA
     Dosage: 8 MG, QHS, PER ORAL
     Route: 048
     Dates: start: 20070501, end: 20070801
  2. UNKNOWN FERTILITY MEDICATIONS [Concomitant]
  3. CYMBALTA [Concomitant]
  4. SINGULAIR [Concomitant]
  5. FEXOFENADINE 180 (FEXOFENADINE) [Concomitant]
  6. GLUMETZA (METFORMIN HYDROCHLORIDE) [Concomitant]
  7. ASPIRIN [Concomitant]
  8. OMACOR [Concomitant]
  9. PARODEL (BROMOCRIPTINE MESILATE) [Concomitant]

REACTIONS (1)
  - GALACTORRHOEA [None]
